FAERS Safety Report 13902278 (Version 1)
Quarter: 2017Q3

REPORT INFORMATION
  Report Type: Spontaneous
  Country: US (occurrence: US)
  Receive Date: 20170824
  Receipt Date: 20170824
  Transmission Date: 20171127
  Serious: No
  Sender: FDA-Public Use
  Company Number: US-ROCHE-748158

PATIENT
  Age: 80 Year
  Sex: Female
  Weight: 57.6 kg

DRUGS (3)
  1. CARBOPLATIN. [Concomitant]
     Active Substance: CARBOPLATIN
     Route: 065
     Dates: start: 20101026, end: 20101207
  2. HERCEPTIN [Suspect]
     Active Substance: TRASTUZUMAB
     Indication: BREAST CANCER METASTATIC
     Route: 042
  3. TAXOTERE [Concomitant]
     Active Substance: DOCETAXEL
     Indication: BREAST CANCER METASTATIC
     Route: 065
     Dates: start: 20101026, end: 20101207

REACTIONS (1)
  - Thrombocytopenia [Unknown]

NARRATIVE: CASE EVENT DATE: 20101207
